FAERS Safety Report 8422839-8 (Version None)
Quarter: 2012Q2

REPORT INFORMATION
  Report Type: 
  Country: None (occurrence: None)
  Receive Date: 20120608
  Receipt Date: 20120530
  Transmission Date: 20120825
  Serious: Yes (Hospitalization, Other)
  Sender: FDA-Public Use
  Company Number: NL-MEDIMMUNE-MEDI-0014250

PATIENT
  Age: 27 Month
  Sex: Female
  Weight: 10.4 kg

DRUGS (11)
  1. SYNAGIS [Suspect]
     Route: 030
     Dates: end: 20120406
  2. FLUTICASONE PROPIONATE [Concomitant]
     Dosage: 1 PUFF TWO TIMES A DAY
  3. CARVEDILOL [Concomitant]
  4. SPIRONOLACTUM [Concomitant]
     Dosage: TWO TIMES A DAY
  5. CARBASALATE CALCIUM [Concomitant]
  6. SYNAGIS [Suspect]
     Indication: HEART DISEASE CONGENITAL
     Route: 030
     Dates: start: 20111019, end: 20111019
  7. POLYETHYLENE GLYCOL [Concomitant]
  8. SYNAGIS [Suspect]
     Route: 030
     Dates: start: 20111116, end: 20111116
  9. SYNAGIS [Suspect]
     Route: 030
     Dates: start: 20111214, end: 20111214
  10. CAPTOPRIL [Concomitant]
  11. FUROSEMIDE [Concomitant]

REACTIONS (8)
  - VOMITING [None]
  - DYSPNOEA [None]
  - PYREXIA [None]
  - WEIGHT DECREASED [None]
  - RESPIRATORY SYNCYTIAL VIRUS TEST POSITIVE [None]
  - HYPOPHAGIA [None]
  - RHINORRHOEA [None]
  - COUGH [None]
